FAERS Safety Report 6175912-1 (Version None)
Quarter: 2009Q2

REPORT INFORMATION
  Report Type: 
  Country: None (occurrence: None)
  Receive Date: 20090501
  Receipt Date: 20090420
  Transmission Date: 20091009
  Serious: Yes (Death, Other)
  Sender: FDA-Public Use
  Company Number: JP-BAXTER-2009BH005759

PATIENT
  Age: 64 Year
  Sex: Female

DRUGS (5)
  1. ENDOXAN BAXTER [Suspect]
     Indication: UTERINE CANCER
     Route: 065
  2. CISPLATIN [Suspect]
     Indication: UTERINE CANCER
     Route: 065
  3. ADRIACIN [Concomitant]
     Indication: UTERINE CANCER
     Route: 065
  4. PACLITAXEL [Concomitant]
     Indication: METASTASES TO LUNG
     Route: 065
  5. CARBOPLATIN [Concomitant]
     Indication: METASTASES TO LUNG
     Route: 065

REACTIONS (5)
  - DEATH [None]
  - DYSPNOEA [None]
  - MYELODYSPLASTIC SYNDROME [None]
  - PALPITATIONS [None]
  - PANCYTOPENIA [None]
